FAERS Safety Report 8936953 (Version 2)
Quarter: 2013Q1

REPORT INFORMATION
  Report Type: Report from Study
  Country: US (occurrence: US)
  Receive Date: 20121130
  Receipt Date: 20130110
  Transmission Date: 20140127
  Serious: Yes (Other)
  Sender: FDA-Public Use
  Company Number: US-ROCHE-1158990

PATIENT
  Age: 75 Year
  Sex: Female

DRUGS (2)
  1. RANIBIZUMAB [Suspect]
     Indication: EYE HAEMORRHAGE
     Route: 050
     Dates: start: 201210
  2. BEVACIZUMAB [Suspect]
     Indication: EYE HAEMORRHAGE
     Route: 050
     Dates: start: 201209, end: 201210

REACTIONS (7)
  - Injection site erythema [Unknown]
  - Eye disorder [Unknown]
  - Eyelid function disorder [Unknown]
  - Visual impairment [Unknown]
  - Swelling [Unknown]
  - Eye haemorrhage [Unknown]
  - Corneal abrasion [Unknown]
